FAERS Safety Report 6717021-6 (Version None)
Quarter: 2010Q2

REPORT INFORMATION
  Report Type: 
  Country: None (occurrence: None)
  Receive Date: 20100510
  Receipt Date: 20100503
  Transmission Date: 20101027
  Serious: No
  Sender: FDA-Public Use
  Company Number: US-JNJFOC-20100406922

PATIENT
  Sex: Male
  Weight: 117.94 kg

DRUGS (3)
  1. DURAGESIC-100 [Suspect]
     Indication: BACK PAIN
     Dosage: NDC: 5045803605
     Route: 062
  2. DURAGESIC-100 [Suspect]
     Route: 062
  3. AMBIEN [Concomitant]
     Indication: SLEEP DISORDER
     Route: 048

REACTIONS (5)
  - DECREASED APPETITE [None]
  - NAUSEA [None]
  - PRODUCT ADHESION ISSUE [None]
  - THERAPY CESSATION [None]
  - WRONG TECHNIQUE IN DRUG USAGE PROCESS [None]
